FAERS Safety Report 5877172-5 (Version None)
Quarter: 2008Q3

REPORT INFORMATION
  Report Type: 
  Country: None (occurrence: None)
  Receive Date: 20080910
  Receipt Date: 20080904
  Transmission Date: 20090109
  Serious: Yes (Other)
  Sender: FDA-Public Use
  Company Number: DE-AMGEN-UK304978

PATIENT
  Sex: Male
  Weight: 71.5 kg

DRUGS (2)
  1. VECTIBIX [Suspect]
     Indication: COLORECTAL CANCER
     Route: 042
     Dates: start: 20071203, end: 20080214
  2. ZOFRAN [Concomitant]
     Route: 042

REACTIONS (2)
  - EYE DISORDER [None]
  - SKIN REACTION [None]
